FAERS Safety Report 10507601 (Version 1)
Quarter: 2014Q4

REPORT INFORMATION
  Report Type: Spontaneous
  Country: US (occurrence: None)
  Receive Date: 20141008
  Receipt Date: 20141008
  Transmission Date: 20150528
  Serious: Yes (Other)
  Sender: FDA-Public Use
  Company Number: None

PATIENT
  Age: 35 Year
  Sex: Female
  Weight: 59.88 kg

DRUGS (1)
  1. DULOXETINE [Suspect]
     Active Substance: DULOXETINE
     Indication: FIBROMYALGIA
     Dosage: 1 PILL
     Route: 048
     Dates: start: 20140809, end: 20141001

REACTIONS (16)
  - Product substitution issue [None]
  - Nausea [None]
  - Hyperacusis [None]
  - Condition aggravated [None]
  - Gastrointestinal disorder [None]
  - Abnormal behaviour [None]
  - Suicidal ideation [None]
  - Emotional disorder [None]
  - Libido increased [None]
  - Photopsia [None]
  - Pain [None]
  - Temperature intolerance [None]
  - Night sweats [None]
  - Irritability [None]
  - Vomiting [None]
  - Breakthrough pain [None]

NARRATIVE: CASE EVENT DATE: 20140810
